FAERS Safety Report 21512556 (Version 1)
Quarter: 2022Q4

REPORT INFORMATION
  Report Type: Spontaneous
  Country: US (occurrence: US)
  Receive Date: 20221027
  Receipt Date: 20221027
  Transmission Date: 20230113
  Serious: Yes (Other)
  Sender: FDA-Public Use
  Company Number: US-PROCTER_AND_GAMBLE-GS22101800

PATIENT
  Age: 74 Year
  Sex: Female

DRUGS (1)
  1. STANNOUS FLUORIDE [Suspect]
     Active Substance: STANNOUS FLUORIDE
     Indication: Gingival pain
     Dosage: 1X LESS THEN PEA SIZE
     Route: 002

REACTIONS (6)
  - Hypersensitivity [Unknown]
  - Dyspnoea [Recovered/Resolved]
  - Rash [Recovered/Resolved]
  - Gingival discomfort [Not Recovered/Not Resolved]
  - Cough [Recovered/Resolved]
  - Upper-airway cough syndrome [Recovered/Resolved]

NARRATIVE: CASE EVENT DATE: 20221001
